FAERS Safety Report 13608776 (Version 3)
Quarter: 2017Q2

REPORT INFORMATION
  Report Type: Spontaneous
  Country: CH (occurrence: CH)
  Receive Date: 20170602
  Receipt Date: 20170607
  Transmission Date: 20170830
  Serious: Yes (Death, Hospitalization, Other)
  Sender: FDA-Public Use
  Company Number: CH-PFIZER INC-2015235690

PATIENT
  Age: 82 Year
  Sex: Female
  Weight: 60 kg

DRUGS (5)
  1. METHOTREXATE SODIUM. [Suspect]
     Active Substance: METHOTREXATE SODIUM
     Indication: RHEUMATOID ARTHRITIS
     Dosage: 15 MG, 2X/WEEK (15 MG,TUESDAY AND FRIDAY)
     Route: 048
     Dates: end: 20150615
  2. NOVALGIN [Interacting]
     Active Substance: METAMIZOLE SODIUM
     Indication: PROCEDURAL PAIN
     Dosage: 4 G, 1X/DAY (1 D)
     Route: 048
     Dates: end: 20150615
  3. INFLAMAC [Interacting]
     Active Substance: DICLOFENAC SODIUM
     Indication: PROCEDURAL PAIN
     Dosage: 100 MG, 1X/DAY
     Route: 048
     Dates: start: 20150531, end: 20150607
  4. HALDOL [Suspect]
     Active Substance: HALOPERIDOL
     Indication: DELIRIUM
     Dosage: 10 MG, 1X/DAY
     Route: 048
     Dates: start: 20150604, end: 20150607
  5. DAFALGAN [Suspect]
     Active Substance: ACETAMINOPHEN
     Indication: PROCEDURAL PAIN
     Dosage: 2 G, 1X/DAY
     Route: 048
     Dates: start: 20150601, end: 20150615

REACTIONS (9)
  - Pneumonia [Fatal]
  - Oral herpes [Fatal]
  - Agranulocytosis [Fatal]
  - Postoperative wound infection [Fatal]
  - Gastrointestinal haemorrhage [Fatal]
  - Pancytopenia [Fatal]
  - Oral candidiasis [Fatal]
  - Bone marrow failure [Fatal]
  - Drug interaction [Fatal]

NARRATIVE: CASE EVENT DATE: 201506
